FAERS Safety Report 16392686 (Version 4)
Quarter: 2020Q3

REPORT INFORMATION
  Report Type: Other
  Country: DE (occurrence: DE)
  Receive Date: 20190605
  Receipt Date: 20200831
  Transmission Date: 20201102
  Serious: Yes (Other)
  Sender: FDA-Public Use
  Company Number: DE-ROCHE-2330590

PATIENT
  Age: 39 Year
  Sex: Female
  Weight: 75 kg

DRUGS (11)
  1. RANITIDINE. [Concomitant]
     Active Substance: RANITIDINE
     Indication: PROPHYLAXIS
     Dosage: INDICATION: SIDE EFFECT PROPHYLAXIS IN THE CONTEXT OF OCREVUS ADMINISTRATION
     Route: 048
     Dates: start: 20180603, end: 20180605
  2. PREDNISOLUT [Concomitant]
     Active Substance: PREDNISOLONE
     Indication: PROPHYLAXIS
     Dosage: INDICATION: SIDE EFFECT PROPHYLAXIS IN THE CONTEXT OF OCREVUS ADMINISTRATION
     Route: 042
     Dates: start: 20180604, end: 20180604
  3. RANITIDINE. [Concomitant]
     Active Substance: RANITIDINE
     Route: 048
     Dates: start: 20180617, end: 20180619
  4. RANITIDINE. [Concomitant]
     Active Substance: RANITIDINE
     Route: 048
     Dates: start: 20190226, end: 20190228
  5. PREDNISOLON [Concomitant]
     Active Substance: PREDNISOLONE
     Indication: PROPHYLAXIS
     Route: 042
     Dates: start: 20180618, end: 20180618
  6. DEKRISTOL [Concomitant]
     Active Substance: CHOLECALCIFEROL
     Indication: VITAMIN D DEFICIENCY
     Route: 048
     Dates: start: 20140409
  7. OCRELIZUMAB. [Suspect]
     Active Substance: OCRELIZUMAB
     Indication: MULTIPLE SCLEROSIS
     Dosage: MOST RECENT DOSE WAS RECEIVED ON 18/JUN/2018
     Route: 042
     Dates: start: 20180604
  8. AERIUS [Concomitant]
     Indication: PROPHYLAXIS
     Dosage: INDICATION: SIDE EFFECT PROPHYLAXIS IN THE CONTEXT OF OCREVUS ADMINISTRATION
     Route: 048
     Dates: start: 20180603, end: 20180605
  9. PREDNISOLON [Concomitant]
     Active Substance: PREDNISOLONE
     Route: 042
     Dates: start: 20190227, end: 20190227
  10. AERIUS [Concomitant]
     Route: 048
     Dates: start: 20190226, end: 20190228
  11. AERIUS [Concomitant]
     Dosage: INDICATION: SIDE EFFECT PROPHYLAXIS IN THE CONTEXT OF OCREVUS ADMINISTRATION
     Route: 048
     Dates: start: 20180617, end: 20180619

REACTIONS (1)
  - Pneumonia [Recovered/Resolved]

NARRATIVE: CASE EVENT DATE: 20180828
